FAERS Safety Report 8816502 (Version 1)
Quarter: 2012Q4

REPORT INFORMATION
  Report Type: Spontaneous
  Country: JP (occurrence: None)
  Receive Date: 20120927
  Receipt Date: 20120927
  Transmission Date: 20130627
  Serious: Yes (Other)
  Sender: FDA-Public Use
  Company Number: 201209IM002794

PATIENT
  Age: 11 Month
  Sex: Male

DRUGS (2)
  1. INTERFERON GAMMA-1B [Suspect]
     Indication: OSTEOPETROSIS
     Route: 058
  2. ALPHA-HYDROXYVITAMIN D3 [Concomitant]

REACTIONS (7)
  - Hepatosplenomegaly [None]
  - Blood product transfusion dependent [None]
  - Bone marrow failure [None]
  - Respiratory failure [None]
  - Pneumonia aspiration [None]
  - Pulmonary haemorrhage [None]
  - Condition aggravated [None]
